FAERS Safety Report 19827954 (Version 2)
Quarter: 2022Q1

REPORT INFORMATION
  Report Type: Spontaneous
  Country: GB (occurrence: GB)
  Receive Date: 20210914
  Receipt Date: 20220214
  Transmission Date: 20220423
  Serious: Yes (Death, Hospitalization, Other)
  Sender: FDA-Public Use
  Company Number: None

PATIENT
  Age: 39 Year
  Sex: Male

DRUGS (11)
  1. CLONAZEPAM [Suspect]
     Active Substance: CLONAZEPAM
     Indication: Status epilepticus
     Route: 065
  2. FENTANYL [Suspect]
     Active Substance: FENTANYL
     Indication: Status epilepticus
     Dosage: 100 UG, QH, ALL SEDATION STOPPED 28/01 (100 MICROGRAM PER 100 GRAM,1 HR)
     Route: 042
     Dates: end: 20170128
  3. LEVETIRACETAM [Suspect]
     Active Substance: LEVETIRACETAM
     Indication: Status epilepticus
     Route: 065
  4. MIDAZOLAM HYDROCHLORIDE [Suspect]
     Active Substance: MIDAZOLAM HYDROCHLORIDE
     Indication: Status epilepticus
     Dosage: 20 MG, QH (20 MG/HR), ALL SEDATION STOPPED 28/01 (20 MG,1 HR)
     Route: 042
     Dates: end: 20170128
  5. PHENOBARBITAL [Suspect]
     Active Substance: PHENOBARBITAL
     Indication: Status epilepticus
     Route: 065
  6. PHENYTOIN SODIUM [Suspect]
     Active Substance: PHENYTOIN SODIUM
     Indication: Status epilepticus
     Route: 065
  7. TOPIRAMATE [Suspect]
     Active Substance: TOPIRAMATE
     Indication: Status epilepticus
     Route: 048
  8. THIOPENTAL SODIUM [Suspect]
     Active Substance: THIOPENTAL SODIUM
     Indication: Status epilepticus
     Dosage: 4.8 MG/KG, QH (UP TO 4.80 MG/KG/H)
     Route: 042
     Dates: start: 20161114, end: 20170109
  9. PROPOFOL [Suspect]
     Active Substance: PROPOFOL
     Indication: Status epilepticus
     Dosage: 1 MG/KG, QH, ALL SEDATION STOPPED 28/01 (1 MG/KG,1 HR)
     Route: 042
     Dates: end: 20170128
  10. VALPROATE SODIUM [Suspect]
     Active Substance: VALPROATE SODIUM
     Indication: Status epilepticus
     Route: 065
  11. PREDNISOLONE [Suspect]
     Active Substance: PREDNISOLONE
     Indication: Status epilepticus
     Dosage: HIGH DOSE
     Route: 065

REACTIONS (14)
  - Autonomic nervous system imbalance [Fatal]
  - Sepsis [Fatal]
  - Malabsorption [Fatal]
  - Pseudomembranous colitis [Fatal]
  - Metabolic acidosis [Fatal]
  - Acute kidney injury [Fatal]
  - Colitis ischaemic [Fatal]
  - Infection [Fatal]
  - Abdominal wall haematoma [Fatal]
  - Deep vein thrombosis [Fatal]
  - Multiple organ dysfunction syndrome [Fatal]
  - Coagulopathy [Fatal]
  - Intensive care unit acquired weakness [Fatal]
  - Hepatitis fulminant [Fatal]
